FAERS Safety Report 6699494-0 (Version None)
Quarter: 2010Q2

REPORT INFORMATION
  Report Type: 
  Country: None (occurrence: None)
  Receive Date: 20100427
  Receipt Date: 20100427
  Transmission Date: 20101027
  Serious: Yes (Other)
  Sender: FDA-Public Use
  Company Number: None

PATIENT
  Age: 51 Year
  Sex: Female
  Weight: 83.9154 kg

DRUGS (1)
  1. TYSABRI [Suspect]
     Indication: MULTIPLE SCLEROSIS
     Dosage: ONE INFUSION ONE DOSE MONTHLY IV
     Route: 042
     Dates: start: 20091012, end: 20091012

REACTIONS (3)
  - GAIT DISTURBANCE [None]
  - HYPERSENSITIVITY [None]
  - TREMOR [None]
